FAERS Safety Report 9679529 (Version 1)
Quarter: 2013Q4

REPORT INFORMATION
  Report Type: Spontaneous
  Country: US (occurrence: US)
  Receive Date: 20131109
  Receipt Date: 20131109
  Transmission Date: 20140711
  Serious: No
  Sender: FDA-Public Use
  Company Number: US-SANOFI-AVENTIS-2013SA078882

PATIENT
  Age: 52 Year
  Sex: Female

DRUGS (1)
  1. ALLEGRA-D [Suspect]
     Indication: HYPERSENSITIVITY
     Route: 048
     Dates: start: 20130731, end: 20130731

REACTIONS (5)
  - Feeling abnormal [Unknown]
  - Nervousness [Unknown]
  - Dizziness [Unknown]
  - Palpitations [Unknown]
  - Sleep disorder [Unknown]
